FAERS Safety Report 8402339-1 (Version None)
Quarter: 2012Q2

REPORT INFORMATION
  Report Type: 
  Country: None (occurrence: None)
  Receive Date: 20120601
  Receipt Date: 20120521
  Transmission Date: 20120825
  Serious: Yes (Hospitalization)
  Sender: FDA-Public Use
  Company Number: BR-BRISTOL-MYERS SQUIBB COMPANY-16625584

PATIENT
  Sex: Female

DRUGS (5)
  1. URSACOL [Concomitant]
  2. METFORMIN HCL [Suspect]
     Dosage: TABS 1DF: 2 TABS
     Dates: start: 20110101, end: 20120519
  3. ATORVASTATIN CALCIUM [Concomitant]
     Indication: BLOOD CHOLESTEROL ABNORMAL
  4. HIXIZINE [Concomitant]
     Indication: HYPERSENSITIVITY
  5. RANITIDINE [Concomitant]

REACTIONS (2)
  - TENDON RUPTURE [None]
  - HYPERGLYCAEMIA [None]
